FAERS Safety Report 14266122 (Version 11)
Quarter: 2019Q2

REPORT INFORMATION
  Report Type: Spontaneous
  Country: IT (occurrence: IT)
  Receive Date: 20171209
  Receipt Date: 20190408
  Transmission Date: 20190711
  Serious: Yes (Hospitalization, Other)
  Sender: FDA-Public Use
  Company Number: IT-MYLANLABS-2017M1075665

PATIENT
  Age: 45 Year
  Sex: Male

DRUGS (48)
  1. ATAZANAVIR SULFATE. [Interacting]
     Active Substance: ATAZANAVIR SULFATE
     Indication: HIV INFECTION
     Dosage: 300 MG, UNK
     Route: 048
     Dates: start: 20091007, end: 20150722
  2. ATAZANAVIR SULFATE. [Interacting]
     Active Substance: ATAZANAVIR SULFATE
     Indication: CHRONIC HEPATITIS C
  3. ABACAVIR. [Interacting]
     Active Substance: ABACAVIR
     Indication: CHRONIC HEPATITIS C
  4. COPEGUS [Suspect]
     Active Substance: RIBAVIRIN
     Dosage: 600 MILLIGRAM, QD
     Route: 065
  5. COPEGUS [Suspect]
     Active Substance: RIBAVIRIN
     Dosage: 200 MG -42 TABLETS IN A BOTTLE
     Route: 048
     Dates: start: 20150603, end: 20151111
  6. DAKLINZA [Interacting]
     Active Substance: DACLATASVIR
     Indication: HEPATITIS C
     Dosage: 30 MG, QD
     Route: 048
     Dates: start: 20150603, end: 20150722
  7. KIVEXA [Interacting]
     Active Substance: ABACAVIR SULFATE\LAMIVUDINE
     Indication: HIV INFECTION
     Dosage: 1 DOSAGE FORM
     Route: 048
  8. PERIDON                            /00498201/ [Concomitant]
     Active Substance: DOMPERIDONE
     Indication: NAUSEA
     Dosage: UNK
     Route: 048
     Dates: start: 20110706, end: 20150408
  9. RIBAVIRIN. [Interacting]
     Active Substance: RIBAVIRIN
     Dosage: 1000 MILLIGRAM
     Route: 065
     Dates: start: 2015
  10. EMTRICITABINE/TENOFOVIR DISOPROXIL FUMARATE [Suspect]
     Active Substance: EMTRICITABINE\TENOFOVIR DISOPROXIL FUMARATE
     Indication: HIV INFECTION
     Dosage: UNK
     Route: 065
  11. SOVALDI [Interacting]
     Active Substance: SOFOSBUVIR
     Indication: HIV INFECTION
     Dosage: 400 MILLIGRAM
     Route: 048
     Dates: start: 2015
  12. KIVEXA [Interacting]
     Active Substance: ABACAVIR SULFATE\LAMIVUDINE
     Indication: CHRONIC HEPATITIS C
     Dosage: 30X300+600 MG TABLETS IN PVC/PVDC/AL BLISTER PACKUNK
     Route: 065
     Dates: start: 20120621
  13. TALOFEN [Concomitant]
     Active Substance: PROMAZINE HYDROCHLORIDE
     Dosage: 20 GTT DROPS
     Route: 048
     Dates: start: 20130513
  14. RALTEGRAVIR. [Concomitant]
     Active Substance: RALTEGRAVIR
     Indication: HIV INFECTION
     Dosage: UNK
     Route: 065
  15. RITONAVIR. [Interacting]
     Active Substance: RITONAVIR
     Indication: HIV INFECTION
     Dosage: 100 MILLIGRAM, QD
     Route: 048
     Dates: start: 20091007, end: 20150722
  16. RIBAVIRIN. [Interacting]
     Active Substance: RIBAVIRIN
     Indication: HIV INFECTION
     Dosage: 1000 MILLIGRAM
     Route: 065
     Dates: start: 20150603, end: 20150827
  17. DACLATASVIR. [Interacting]
     Active Substance: DACLATASVIR
     Indication: CHRONIC HEPATITIS C
     Dosage: 60 MILLIGRAM
     Route: 065
  18. REYATAZ [Interacting]
     Active Substance: ATAZANAVIR SULFATE
     Indication: ACQUIRED IMMUNODEFICIENCY SYNDROME
     Dosage: MG BOTTLE(HIGH DENSITY POLYETHYLENE)30 CAPSULES
  19. KIVEXA [Interacting]
     Active Substance: ABACAVIR SULFATE\LAMIVUDINE
     Dosage: UNK
     Route: 065
  20. LAMIVUDINE. [Concomitant]
     Active Substance: LAMIVUDINE
     Indication: CHRONIC HEPATITIS C
  21. DIBASE [Concomitant]
     Active Substance: CHOLECALCIFEROL
     Indication: PRODUCT USED FOR UNKNOWN INDICATION
     Dosage: 20 GTT, UNK
     Route: 048
     Dates: start: 20120522
  22. SOFOSBUVIR [Concomitant]
     Active Substance: SOFOSBUVIR
     Indication: PRODUCT USED FOR UNKNOWN INDICATION
     Route: 065
  23. SOVALDI [Interacting]
     Active Substance: SOFOSBUVIR
     Indication: HEPATITIS C
     Dosage: 60 MILLIGRAM
     Route: 065
  24. SOVALDI [Interacting]
     Active Substance: SOFOSBUVIR
     Indication: CHRONIC HEPATITIS C
     Dosage: 400 MG BOTTLE, (HDPE)28 TABLETS UNK
     Route: 048
     Dates: start: 20150603, end: 20151111
  25. DAKLINZA [Interacting]
     Active Substance: DACLATASVIR
     Dosage: 60 MILLIGRAM, UNK
     Route: 065
  26. REYATAZ [Interacting]
     Active Substance: ATAZANAVIR SULFATE
     Indication: HIV INFECTION
     Dosage: 300 MG, UNK(300 MG BOTTLE)
     Route: 048
     Dates: start: 20091007, end: 20150722
  27. GAVISCON ADVANCE [Concomitant]
     Active Substance: POTASSIUM BICARBONATE\SODIUM ALGINATE
     Indication: DYSPEPSIA
     Dosage: UNK
     Route: 048
     Dates: start: 20120221, end: 20150408
  28. LAEVOLAC EPS [Concomitant]
     Indication: PRODUCT USED FOR UNKNOWN INDICATION
     Dosage: UNK
     Route: 051
  29. RIBAVIRIN. [Interacting]
     Active Substance: RIBAVIRIN
     Indication: HEPATITIS C
     Dosage: 600 MG, QD
     Route: 065
  30. LAMIVUDINE. [Suspect]
     Active Substance: LAMIVUDINE
     Indication: HIV INFECTION
     Dosage: UNK
     Route: 048
  31. DAKLINZA [Interacting]
     Active Substance: DACLATASVIR
     Dosage: BLISTER PACK (PVC/PCTFE/AL)-28 TABLETSUNK
  32. METADONE CLORIDRATO [Concomitant]
     Active Substance: METHADONE HYDROCHLORIDE
     Indication: DRUG DEPENDENCE
     Dosage: UNK
     Route: 065
     Dates: start: 20090803
  33. ABACAVIR + LAMIVUDIN [Concomitant]
     Active Substance: ABACAVIR\LAMIVUDINE
     Indication: PRODUCT USED FOR UNKNOWN INDICATION
     Route: 065
  34. RITONAVIR. [Interacting]
     Active Substance: RITONAVIR
     Indication: HIV INFECTION
     Dosage: UNK
     Route: 065
  35. ABACAVIR. [Interacting]
     Active Substance: ABACAVIR
     Indication: HIV INFECTION
     Dosage: 1 DF, UNK
     Route: 048
  36. DACLATASVIR. [Interacting]
     Active Substance: DACLATASVIR
     Indication: HIV INFECTION
     Dosage: 30 MILLIGRAM, QD
     Dates: start: 20150603, end: 20150722
  37. COPEGUS [Suspect]
     Active Substance: RIBAVIRIN
     Indication: HEPATITIS C
     Dosage: UNK
     Route: 065
  38. COPEGUS [Suspect]
     Active Substance: RIBAVIRIN
     Dosage: 200 MILLIGRAM
     Route: 048
     Dates: start: 20150603, end: 20150827
  39. DIBASE [Concomitant]
     Active Substance: CHOLECALCIFEROL
     Dosage: UNK
  40. LAMIVUDINE. [Concomitant]
     Active Substance: LAMIVUDINE
     Indication: HIV INFECTION
     Dosage: UNK
     Route: 065
  41. RIBAVIRIN. [Interacting]
     Active Substance: RIBAVIRIN
     Indication: CHRONIC HEPATITIS C
     Dosage: 1200 MG, QD
     Route: 048
     Dates: start: 20150603, end: 20150827
  42. RIBAVIRIN. [Interacting]
     Active Substance: RIBAVIRIN
     Dosage: 1000 MILLIGRAM, QD
     Route: 065
  43. TRUVADA [Interacting]
     Active Substance: EMTRICITABINE\TENOFOVIR DISOPROXIL FUMARATE
     Indication: HIV INFECTION
     Dosage: UNK
     Route: 048
     Dates: start: 20091007, end: 20120621
  44. DAKLINZA [Interacting]
     Active Substance: DACLATASVIR
     Dosage: 60 MG, QD
     Route: 048
  45. TALOFEN [Concomitant]
     Active Substance: PROMAZINE HYDROCHLORIDE
     Indication: PRODUCT USED FOR UNKNOWN INDICATION
     Dosage: 1 DOSAGE FORM
     Route: 048
  46. NEORECORMON [Concomitant]
     Active Substance: ERYTHROPOIETIN
     Indication: ANAEMIA
     Dosage: UNK
     Route: 065
     Dates: start: 20150708, end: 20151110
  47. RITONAVIR. [Interacting]
     Active Substance: RITONAVIR
     Indication: CHRONIC HEPATITIS C
     Dosage: 100 MG BOTTLE (HDPE)-30 TABLETS
     Route: 048
  48. DOMPERIDONE                        /00498202/ [Concomitant]
     Active Substance: DOMPERIDONE MALEATE
     Indication: PRODUCT USED FOR UNKNOWN INDICATION
     Dosage: 20 GTT, UNK
     Route: 048

REACTIONS (10)
  - Jaundice [Unknown]
  - Haemoglobin decreased [Not Recovered/Not Resolved]
  - Nephrolithiasis [Recovered/Resolved]
  - Hyperbilirubinaemia [Recovered/Resolved]
  - Anaemia [Recovered/Resolved]
  - Biliary colic [Unknown]
  - Renal disorder [Recovered/Resolved]
  - Renal tubular disorder [Unknown]
  - Cholelithiasis [Recovered/Resolved]
  - Drug interaction [Recovered/Resolved]

NARRATIVE: CASE EVENT DATE: 20150722
